FAERS Safety Report 16840298 (Version 2)
Quarter: 2019Q4

REPORT INFORMATION
  Report Type: Spontaneous
  Country: US (occurrence: US)
  Receive Date: 20190923
  Receipt Date: 20191017
  Transmission Date: 20200122
  Serious: No
  Sender: FDA-Public Use
  Company Number: US-ASTRAZENECA-2019SF30414

PATIENT
  Sex: Female
  Weight: 72.6 kg

DRUGS (4)
  1. FARXIGA [Suspect]
     Active Substance: DAPAGLIFLOZIN PROPANEDIOL
     Route: 048
  2. BYDUREON BCISE [Suspect]
     Active Substance: EXENATIDE
     Indication: DIABETES MELLITUS
     Route: 058
     Dates: start: 20190608
  3. BYDUREON BCISE [Suspect]
     Active Substance: EXENATIDE
     Indication: DIABETES MELLITUS
     Route: 058
     Dates: start: 20190228
  4. BYDUREON BCISE [Suspect]
     Active Substance: EXENATIDE
     Indication: DIABETES MELLITUS
     Route: 058
     Dates: start: 20190910

REACTIONS (9)
  - Injection site bruising [Unknown]
  - Weight decreased [Unknown]
  - Product dose omission [Unknown]
  - Injection site extravasation [Unknown]
  - Circumstance or information capable of leading to medication error [Unknown]
  - Injection site haemorrhage [Recovered/Resolved]
  - Injection site mass [Recovered/Resolved]
  - Nausea [Unknown]
  - Pain in extremity [Unknown]
